FAERS Safety Report 8160258-2 (Version None)
Quarter: 2012Q1

REPORT INFORMATION
  Report Type: 
  Country: None (occurrence: None)
  Receive Date: 20120223
  Receipt Date: 20120223
  Transmission Date: 20120608
  Serious: Yes (Other)
  Sender: FDA-Public Use
  Company Number: None

PATIENT
  Age: 14 Year
  Sex: Male
  Weight: 111.13 kg

DRUGS (2)
  1. BETAXOLOL [Suspect]
     Indication: POSTURAL ORTHOSTATIC TACHYCARDIA SYNDROME
     Dosage: 5 MG
     Route: 048
     Dates: start: 20111215, end: 20120206
  2. BETAXOLOL [Concomitant]
     Indication: HEART RATE INCREASED
     Dosage: 2.5
     Route: 048

REACTIONS (5)
  - PRODUCT SUBSTITUTION ISSUE [None]
  - HEART RATE INCREASED [None]
  - DRUG EFFECT DECREASED [None]
  - PRODUCT FRIABLE [None]
  - PRODUCT QUALITY ISSUE [None]
